FAERS Safety Report 7488426-3 (Version None)
Quarter: 2011Q2

REPORT INFORMATION
  Report Type: 
  Country: None (occurrence: None)
  Receive Date: 20110518
  Receipt Date: 20101230
  Transmission Date: 20111010
  Serious: Yes (Hospitalization, Other)
  Sender: FDA-Public Use
  Company Number: US-BAYER-201028176NA

PATIENT
  Age: 24 Year
  Sex: Female
  Weight: 54 kg

DRUGS (10)
  1. TOPAMAX [Concomitant]
     Dosage: 50 MG, BID
     Dates: start: 20080307
  2. METHYLIN [Concomitant]
     Dosage: 5 MG, UNK
     Route: 048
     Dates: start: 20080917
  3. YAZ [Suspect]
     Indication: ORAL CONTRACEPTION
     Route: 048
     Dates: start: 20071201, end: 20080713
  4. TOPAMAX [Concomitant]
     Dosage: 50 MG, UNK
     Route: 048
     Dates: start: 20080407
  5. IBUPROFEN [Concomitant]
  6. VERPAMIL HCL [Concomitant]
     Dosage: 200 MG, QD
     Dates: start: 20080201, end: 20080101
  7. PRIMACARE [Concomitant]
  8. DIAZEPAM [Concomitant]
     Dosage: 5 MG, UNK
     Route: 048
     Dates: start: 20080326, end: 20080328
  9. LEXAPRO [Concomitant]
     Dosage: 10 MG, UNK
     Route: 048
     Dates: start: 20080917
  10. AMANTADINE HCL [Concomitant]
     Dosage: 100 MG, UNK
     Route: 048
     Dates: start: 20080917

REACTIONS (10)
  - BRAIN OEDEMA [None]
  - DEEP VEIN THROMBOSIS [None]
  - HYPOKALAEMIA [None]
  - CEREBRAL HAEMORRHAGE [None]
  - CEREBROVASCULAR ACCIDENT [None]
  - SPEECH DISORDER [None]
  - HEMIPARESIS [None]
  - MENTAL STATUS CHANGES [None]
  - CAROTID ARTERY THROMBOSIS [None]
  - CEREBRAL INFARCTION [None]
